FAERS Safety Report 7522641-5 (Version None)
Quarter: 2011Q2

REPORT INFORMATION
  Report Type: 
  Country: None (occurrence: None)
  Receive Date: 20110603
  Receipt Date: 20110513
  Transmission Date: 20111010
  Serious: No
  Sender: FDA-Public Use
  Company Number: US-MYLANLABS-2011S1008876

PATIENT
  Age: 44 Year
  Sex: Male
  Weight: 131.54 kg

DRUGS (5)
  1. ROCURONIUM BROMIDE [Suspect]
     Indication: SMALL INTESTINAL RESECTION
     Route: 042
     Dates: start: 20110426, end: 20110426
  2. ROCURONIUM BROMIDE [Suspect]
     Indication: SEDATION
     Route: 042
     Dates: start: 20110426, end: 20110426
  3. ROCURONIUM BROMIDE [Suspect]
     Route: 042
     Dates: start: 20110426, end: 20110426
  4. ANESTHETICS, GENERAL [Concomitant]
     Route: 055
  5. ROCURONIUM BROMIDE [Suspect]
     Route: 042
     Dates: start: 20110426, end: 20110426

REACTIONS (1)
  - DRUG EFFECT DECREASED [None]
